FAERS Safety Report 10399370 (Version 1)
Quarter: 2014Q3

REPORT INFORMATION
  Report Type: Spontaneous
  Country: IN (occurrence: None)
  Receive Date: 20140819
  Receipt Date: 20140819
  Transmission Date: 20150326
  Serious: Yes (Hospitalization, Other)
  Sender: FDA-Public Use
  Company Number: AUR-APL-2014-08671

PATIENT
  Age: 40 Year
  Sex: Female

DRUGS (2)
  1. ESCITALOPRAM [Suspect]
     Active Substance: ESCITALOPRAM OXALATE
     Indication: DEPRESSION
     Dosage: 5 MG, ONCE A DAY, UNKNOWN
  2. CLONAZEPAM ( CLONAZEPAM) [Concomitant]

REACTIONS (7)
  - Extrapyramidal disorder [None]
  - Oculogyric crisis [None]
  - Bradykinesia [None]
  - Salivary hypersecretion [None]
  - Protrusion tongue [None]
  - Hypokinesia [None]
  - Dysarthria [None]
